FAERS Safety Report 7952558-3 (Version None)
Quarter: 2011Q4

REPORT INFORMATION
  Report Type: 
  Country: None (occurrence: None)
  Receive Date: 20111201
  Receipt Date: 20111121
  Transmission Date: 20120403
  Serious: Yes (Hospitalization)
  Sender: FDA-Public Use
  Company Number: PHHO2011CA019901

PATIENT
  Sex: Male
  Weight: 74.2 kg

DRUGS (4)
  1. PEGASYS [Suspect]
     Indication: HEPATITIS C
     Dosage: 180 MEQ, QW
     Dates: start: 20110321
  2. RIBAVIRIN [Suspect]
     Indication: HEPATITIS C
     Dosage: 600 MG, BID
     Dates: start: 20110321
  3. NO TREATMENT RECEIVED [Suspect]
     Indication: LIVER TRANSPLANT
     Dosage: UNK
  4. PROGRAF [Suspect]
     Indication: LIVER TRANSPLANT
     Dosage: 1.5 MG, QD
     Dates: start: 20050725

REACTIONS (2)
  - PANCYTOPENIA [None]
  - ASTHENIA [None]
